FAERS Safety Report 5562750-3 (Version None)
Quarter: 2007Q4

REPORT INFORMATION
  Report Type: 
  Country: None (occurrence: None)
  Receive Date: 20071211
  Receipt Date: 20071211
  Transmission Date: 20080405
  Serious: Yes (Life-Threatening, Hospitalization, Other)
  Sender: FDA-Public Use
  Company Number: None

PATIENT
  Sex: Male
  Weight: 61.2356 kg

DRUGS (1)
  1. ADDERALL XR 10 [Suspect]
     Indication: ATTENTION DEFICIT/HYPERACTIVITY DISORDER
     Dosage: PO
     Route: 048
     Dates: start: 20051001, end: 20051201

REACTIONS (6)
  - DYSPNOEA [None]
  - EDUCATIONAL PROBLEM [None]
  - FATIGUE [None]
  - GRAND MAL CONVULSION [None]
  - PALPITATIONS [None]
  - QUALITY OF LIFE DECREASED [None]
